FAERS Safety Report 5818562-6 (Version None)
Quarter: 2008Q3

REPORT INFORMATION
  Report Type: 
  Country: None (occurrence: None)
  Receive Date: 20080718
  Receipt Date: 20080707
  Transmission Date: 20090109
  Serious: Yes (Hospitalization)
  Sender: FDA-Public Use
  Company Number: 232088J08USA

PATIENT
  Age: 49 Year
  Sex: Female

DRUGS (7)
  1. REBIF [Suspect]
     Indication: RELAPSING-REMITTING MULTIPLE SCLEROSIS
     Dosage: 44 MCG, 3 IN 1 WEEKS,
     Dates: start: 20020830
  2. ZIAC [Concomitant]
  3. NEURONTIN [Concomitant]
  4. ZANAFLEX [Concomitant]
  5. PREVACID [Concomitant]
  6. MOTRIN [Concomitant]
  7. PROVIGIL [Concomitant]

REACTIONS (3)
  - ANKLE FRACTURE [None]
  - CHOLELITHIASIS [None]
  - FALL [None]
